FAERS Safety Report 24200456 (Version 2)
Quarter: 2024Q3

REPORT INFORMATION
  Report Type: Spontaneous
  Country: GB (occurrence: GB)
  Receive Date: 20240812
  Receipt Date: 20240813
  Transmission Date: 20241016
  Serious: No
  Sender: BAYER
  Company Number: GB-BAYER-2024A109928

PATIENT
  Sex: Female

DRUGS (2)
  1. LEVONORGESTREL [Suspect]
     Active Substance: LEVONORGESTREL
     Dosage: 1.5 MG, ONCE
     Route: 048
  2. MIRENA [Suspect]
     Active Substance: LEVONORGESTREL
     Dosage: 20?G/DAY
     Route: 015

REACTIONS (2)
  - Product monitoring error [None]
  - Labelled drug-disease interaction medication error [None]
